FAERS Safety Report 7782197-9 (Version None)
Quarter: 2011Q3

REPORT INFORMATION
  Report Type: 
  Country: None (occurrence: None)
  Receive Date: 20110927
  Receipt Date: 20110921
  Transmission Date: 20111222
  Serious: Yes (Other)
  Sender: FDA-Public Use
  Company Number: US-ALLERGAN-1112644US

PATIENT

DRUGS (1)
  1. OZURDEX [Suspect]
     Indication: UVEITIS
     Dosage: UNK
     Route: 031

REACTIONS (1)
  - ENDOPHTHALMITIS [None]
